FAERS Safety Report 15160809 (Version 2)
Quarter: 2018Q3

REPORT INFORMATION
  Report Type: Spontaneous
  Country: CN (occurrence: CN)
  Receive Date: 20180718
  Receipt Date: 20180720
  Transmission Date: 20181010
  Serious: Yes (Hospitalization)
  Sender: FDA-Public Use
  Company Number: CN-ELI_LILLY_AND_COMPANY-CN201807006994

PATIENT

DRUGS (2)
  1. DULOXETINE HYDROCHLORIDE. [Suspect]
     Active Substance: DULOXETINE HYDROCHLORIDE
     Indication: SOMATIC SYMPTOM DISORDER
     Dosage: 120 MG, SINGLE
     Route: 048
     Dates: start: 201804
  2. LORAZEPAM. [Concomitant]
     Active Substance: LORAZEPAM
     Indication: SOMATIC SYMPTOM DISORDER
     Dosage: 4 MG, UNK
     Dates: start: 201804

REACTIONS (3)
  - Gait disturbance [Unknown]
  - Akathisia [Unknown]
  - Overdose [Unknown]
